FAERS Safety Report 9602164 (Version 2)
Quarter: 2014Q1

REPORT INFORMATION
  Report Type: Spontaneous
  Country: CA (occurrence: CA)
  Receive Date: 20131007
  Receipt Date: 20140121
  Transmission Date: 20141002
  Serious: Yes (Other)
  Sender: FDA-Public Use
  Company Number: CA-SA-2013SA096349

PATIENT
  Age: 51 Year
  Sex: Female

DRUGS (9)
  1. APIDRA SOLOSTAR [Suspect]
     Indication: TYPE 2 DIABETES MELLITUS
     Dosage: BREAKFAST;4UNITS LUNCH;4UNITS, DINNER;6 UNITS?STRENGTH-100U/ML
     Route: 058
     Dates: start: 201201
  2. APIDRA SOLOSTAR [Suspect]
     Indication: TYPE 2 DIABETES MELLITUS
     Dosage: BREAKFAST;4UNITS LUNCH;4UNITS, DINNER;6 UNITS
     Route: 058
     Dates: start: 20130901
  3. APIDRA SOLOSTAR [Suspect]
     Indication: TYPE 2 DIABETES MELLITUS
     Dosage: BREAKFAST;4UNITS LUNCH;4UNITS, DINNER;6 UNITS
     Route: 058
     Dates: start: 20130923
  4. LANTUS [Suspect]
     Indication: TYPE 2 DIABETES MELLITUS
     Dosage: IN NIGHT DOSE:15 UNIT(S)
     Route: 058
     Dates: start: 201109
  5. PLAVIX [Concomitant]
     Route: 048
  6. ACETYLSALICYLIC ACID [Concomitant]
     Dosage: IN MORNING
     Route: 048
  7. IMDUR [Concomitant]
     Dosage: IN MORNING
     Route: 048
  8. NOVOSEMIDE [Concomitant]
  9. SOLOSTAR [Concomitant]
     Indication: DEVICE THERAPY
     Dates: start: 201201

REACTIONS (3)
  - Dialysis [Unknown]
  - Hyperglycaemia [Recovered/Resolved]
  - Drug ineffective [Unknown]
